FAERS Safety Report 9629379 (Version 1)
Quarter: 2013Q4

REPORT INFORMATION
  Report Type: Spontaneous
  Country: US (occurrence: US)
  Receive Date: 20131017
  Receipt Date: 20131017
  Transmission Date: 20140711
  Serious: No
  Sender: FDA-Public Use
  Company Number: US-ASTRAZENECA-2013SE52202

PATIENT
  Age: 66 Year
  Sex: Male
  Weight: 99.8 kg

DRUGS (12)
  1. CRESTOR [Suspect]
     Indication: BLOOD TRIGLYCERIDES INCREASED
     Route: 048
     Dates: start: 2011, end: 201302
  2. LIPITOR [Suspect]
     Indication: PRODUCT USED FOR UNKNOWN INDICATION
     Route: 065
  3. AMLODIPINE [Concomitant]
     Indication: BLOOD PRESSURE ABNORMAL
     Route: 048
  4. LOSARTAN [Concomitant]
     Indication: HYPERTENSION
     Route: 048
  5. CARVEDILOL [Concomitant]
     Indication: HYPERTENSION
     Route: 048
  6. NIACIN [Concomitant]
     Indication: BLOOD CHOLESTEROL ABNORMAL
  7. GEMFIBROZIL [Concomitant]
     Indication: BLOOD CHOLESTEROL ABNORMAL
  8. FISH OIL [Concomitant]
     Indication: VITAMIN SUPPLEMENTATION
     Route: 048
  9. GRAPE SEED EXTRACT [Concomitant]
     Indication: PHYTOTHERAPY
     Route: 048
  10. BABY ASPIRIN [Concomitant]
     Indication: PROPHYLAXIS
     Route: 048
  11. VITAMIN D [Concomitant]
     Indication: VITAMIN SUPPLEMENTATION
  12. MVI [Concomitant]
     Indication: VITAMIN SUPPLEMENTATION

REACTIONS (8)
  - Discomfort [Recovered/Resolved]
  - Feeling abnormal [Recovered/Resolved]
  - Back pain [Recovered/Resolved]
  - Abdominal pain upper [Recovered/Resolved]
  - Blood triglycerides increased [Unknown]
  - Liver function test abnormal [Unknown]
  - Depressed mood [Recovered/Resolved]
  - Intentional drug misuse [Recovered/Resolved]
